FAERS Safety Report 5654837-1 (Version None)
Quarter: 2008Q1

REPORT INFORMATION
  Report Type: 
  Country: None (occurrence: None)
  Receive Date: 20080307
  Receipt Date: 20070827
  Transmission Date: 20080703
  Serious: Yes (Life-Threatening)
  Sender: FDA-Public Use
  Company Number: A0668117A

PATIENT
  Age: 69 Year
  Sex: Male
  Weight: 79.5 kg

DRUGS (8)
  1. REQUIP [Suspect]
     Indication: PARKINSON'S DISEASE
     Dosage: .5MG FOUR TIMES PER DAY
     Route: 048
     Dates: start: 20070301, end: 20070101
  2. STALEVO 100 [Concomitant]
  3. BACLOFEN [Concomitant]
  4. LYRICA [Concomitant]
  5. ALTACE [Concomitant]
  6. ATENOLOL [Concomitant]
  7. TIZANIDINE HCL [Concomitant]
  8. POTASSIUM CHLORIDE [Concomitant]

REACTIONS (2)
  - SOMNAMBULISM [None]
  - SUDDEN ONSET OF SLEEP [None]
